FAERS Safety Report 23579637 (Version 1)
Quarter: 2024Q1

REPORT INFORMATION
  Report Type: Report from Study
  Country: JP (occurrence: JP)
  Receive Date: 20240229
  Receipt Date: 20240229
  Transmission Date: 20240410
  Serious: Yes (Death, Hospitalization, Other)
  Sender: FDA-Public Use
  Company Number: JP-BAUSCH-BL-2023-018032

PATIENT
  Age: 44 Year
  Sex: Female
  Weight: 52 kg

DRUGS (21)
  1. DEMSER [Suspect]
     Active Substance: METYROSINE
     Indication: Blood catecholamines increased
     Dosage: EVERYDAY (IN THE MORNING)
     Route: 048
     Dates: start: 20221101, end: 20221221
  2. DEMSER [Suspect]
     Active Substance: METYROSINE
     Dosage: EVERYDAY (BEFORE BEDTIME)
     Route: 048
     Dates: start: 20221222, end: 20230419
  3. DEMSER [Suspect]
     Active Substance: METYROSINE
     Dosage: Q12H (IN THE MORNING/BEFORE BEDTIME)
     Route: 048
     Dates: start: 20230420, end: 20231016
  4. DEMSER [Suspect]
     Active Substance: METYROSINE
     Dosage: Q8H (IN THE MORNING/IN THE AFTERNOON/BEFORE BEDTIME)
     Route: 048
     Dates: start: 20231017, end: 20231025
  5. DEMSER [Suspect]
     Active Substance: METYROSINE
     Dosage: 500 MG IN THE MORNING/250 MG IN THE AFTERNOON/500 MG BEFORE BEDTIME
     Route: 048
     Dates: start: 20231026, end: 20231101
  6. DEMSER [Suspect]
     Active Substance: METYROSINE
     Dosage: Q6H (IN THE MORNING/IN THE AFTERNOON/IN THE EVENING/BEFORE BEDTIME)
     Route: 048
     Dates: start: 20231102
  7. CYCLOPHOSPHAMIDE [Suspect]
     Active Substance: CYCLOPHOSPHAMIDE
     Indication: Phaeochromocytoma
     Route: 065
  8. VINCRISTINE SULFATE [Suspect]
     Active Substance: VINCRISTINE SULFATE
     Indication: Phaeochromocytoma
     Route: 065
  9. DACARBAZINE [Suspect]
     Active Substance: DACARBAZINE
     Indication: Phaeochromocytoma
     Route: 065
  10. APREPITANT [Concomitant]
     Active Substance: APREPITANT
     Indication: Product used for unknown indication
  11. DOXAZOSIN [Concomitant]
     Active Substance: DOXAZOSIN MESYLATE
     Indication: Product used for unknown indication
  12. CARVEDILOL [Concomitant]
     Active Substance: CARVEDILOL
     Indication: Product used for unknown indication
  13. DECADRON [Concomitant]
     Active Substance: DEXAMETHASONE
     Indication: Product used for unknown indication
  14. MAGNESIUM OXIDE [Concomitant]
     Active Substance: MAGNESIUM OXIDE
     Indication: Product used for unknown indication
  15. CALCIUM CARBONATE\CHOLECALCIFEROL\MAGNESIUM CARBONATE [Concomitant]
     Active Substance: CALCIUM CARBONATE\CHOLECALCIFEROL\MAGNESIUM CARBONATE
     Indication: Product used for unknown indication
  16. BIO-THREE [Concomitant]
     Active Substance: HERBALS
     Indication: Product used for unknown indication
  17. OXYCODONE HYDROCHLORIDE [Concomitant]
     Active Substance: OXYCODONE HYDROCHLORIDE
     Indication: Product used for unknown indication
     Dosage: SLOW RELEASE TABLET
  18. OXYCODONE HYDROCHLORIDE [Concomitant]
     Active Substance: OXYCODONE HYDROCHLORIDE
     Indication: Product used for unknown indication
     Dosage: POWDER (EXCEPT [DPO])
  19. SYMPROIC [Concomitant]
     Active Substance: NALDEMEDINE
     Indication: Product used for unknown indication
  20. D-SORBITOL [Concomitant]
     Indication: Product used for unknown indication
  21. LINZESS [Concomitant]
     Active Substance: LINACLOTIDE
     Indication: Product used for unknown indication

REACTIONS (7)
  - Cardiac failure [Fatal]
  - Platelet count decreased [Recovered/Resolved]
  - Vomiting [Recovered/Resolved]
  - White blood cell count decreased [Recovered/Resolved]
  - Neutrophil count decreased [Recovered/Resolved]
  - Malaise [Recovered/Resolved]
  - Constipation [Recovered/Resolved]

NARRATIVE: CASE EVENT DATE: 20221220
